FAERS Safety Report 15634304 (Version 1)
Quarter: 2018Q4

REPORT INFORMATION
  Report Type: Other
  Country: US (occurrence: US)
  Receive Date: 20181119
  Receipt Date: 20181119
  Transmission Date: 20190205
  Serious: Yes (Hospitalization, Other)
  Sender: FDA-Public Use
  Company Number: US-INVATECH-000002

PATIENT
  Age: 73 Year
  Sex: Female

DRUGS (5)
  1. DOPAMINE [Concomitant]
     Active Substance: DOPAMINE\DOPAMINE HYDROCHLORIDE
     Indication: BRADYCARDIA
     Route: 041
  2. ATROPINE/ATROPINE METHONITRATE/ATROPINE METHYLBROMIDE/ATROPINE N-OXIDE HYDROCHLORIDE/ATROPINE SULFAT [Concomitant]
     Indication: BRADYCARDIA
  3. PYRIDOSTIGMINE/PYRIDOSTIGMINE BROMIDE [Suspect]
     Active Substance: PYRIDOSTIGMINE
     Route: 048
  4. INSULIN [Concomitant]
     Active Substance: INSULIN NOS
     Indication: HYPERKALAEMIA
  5. GLUCOSE [Concomitant]
     Active Substance: DEXTROSE
     Indication: HYPERKALAEMIA

REACTIONS (5)
  - Atrioventricular block complete [Unknown]
  - Bradycardia [Recovering/Resolving]
  - Mental status changes [Unknown]
  - Hypotension [Unknown]
  - Asthenia [Unknown]
